FAERS Safety Report 7283529-0 (Version None)
Quarter: 2011Q1

REPORT INFORMATION
  Report Type: 
  Country: None (occurrence: None)
  Receive Date: 20110209
  Receipt Date: 20110203
  Transmission Date: 20110831
  Serious: Yes (Hospitalization)
  Sender: FDA-Public Use
  Company Number: US-GENZYME-FABR-1001572

PATIENT
  Sex: Female

DRUGS (2)
  1. FABRAZYME [Suspect]
     Dosage: 80 MG, Q2W
     Route: 042
     Dates: start: 20090202, end: 20100920
  2. FABRAZYME [Suspect]
     Indication: FABRY'S DISEASE
     Dosage: 80 MG, Q3W
     Route: 042
     Dates: start: 20100921

REACTIONS (1)
  - TRANSIENT ISCHAEMIC ATTACK [None]
